FAERS Safety Report 6738297-5 (Version None)
Quarter: 2010Q2

REPORT INFORMATION
  Report Type: 
  Country: None (occurrence: None)
  Receive Date: 20100524
  Receipt Date: 20100518
  Transmission Date: 20101027
  Serious: Yes (Other)
  Sender: FDA-Public Use
  Company Number: B0656753A

PATIENT
  Age: 45 Year
  Sex: Female

DRUGS (3)
  1. AUGMENTIN '125' [Suspect]
     Indication: BRONCHITIS
     Dosage: 625MG TWICE PER DAY
     Route: 048
     Dates: start: 20100515, end: 20100517
  2. GIVALEX [Concomitant]
  3. UNKNOWN DRUG [Concomitant]

REACTIONS (2)
  - DYSPNOEA [None]
  - FACE OEDEMA [None]
